FAERS Safety Report 6600868-4 (Version None)
Quarter: 2010Q1

REPORT INFORMATION
  Report Type: 
  Country: None (occurrence: None)
  Receive Date: 20100225
  Receipt Date: 20091221
  Transmission Date: 20100710
  Serious: No
  Sender: FDA-Public Use
  Company Number: A0832863A

PATIENT
  Age: 47 Year
  Sex: Female

DRUGS (4)
  1. LAMICTAL CD [Suspect]
     Dosage: 25MG PER DAY
     Route: 048
     Dates: start: 20091104, end: 20091125
  2. SERTRALINE HCL [Concomitant]
     Dosage: 200MG PER DAY
     Route: 048
  3. WELLBUTRIN SR [Concomitant]
     Dosage: 200MG TWICE PER DAY
     Route: 048
  4. AMBIEN CR [Concomitant]
     Dosage: 12.5MG AS REQUIRED
     Route: 048

REACTIONS (3)
  - OEDEMA MOUTH [None]
  - STOMATITIS [None]
  - SWOLLEN TONGUE [None]
